FAERS Safety Report 11976104 (Version 8)
Quarter: 2016Q3

REPORT INFORMATION
  Report Type: Spontaneous
  Country: US (occurrence: US)
  Receive Date: 20160129
  Receipt Date: 20160831
  Transmission Date: 20161109
  Serious: Yes (Life-Threatening, Hospitalization, Other)
  Sender: FDA-Public Use
  Company Number: US-BRISTOL-MYERS SQUIBB COMPANY-BMS-2016-004275

PATIENT
  Sex: Female
  Weight: 58.6 kg

DRUGS (4)
  1. ELIQUIS [Suspect]
     Active Substance: APIXABAN
     Indication: CEREBROVASCULAR ACCIDENT PROPHYLAXIS
     Dosage: 2.5 MG, BID
     Route: 065
  2. HEPARIN [Concomitant]
     Active Substance: HEPARIN SODIUM
     Indication: ACUTE MYOCARDIAL INFARCTION
     Route: 040
  3. CARDIZEM [Concomitant]
     Active Substance: DILTIAZEM HYDROCHLORIDE
     Route: 042
  4. CARDIZEM [Concomitant]
     Active Substance: DILTIAZEM HYDROCHLORIDE
     Indication: PRODUCT USED FOR UNKNOWN INDICATION
     Route: 048

REACTIONS (14)
  - Acute kidney injury [Unknown]
  - Generalised oedema [Unknown]
  - Ischaemic stroke [Unknown]
  - Gastritis [Unknown]
  - Tracheostomy [Unknown]
  - Pneumonia [Unknown]
  - Gastrostomy [Unknown]
  - Clostridium difficile colitis [Unknown]
  - Respiratory failure [Unknown]
  - Fatigue [Unknown]
  - Sinusitis [Unknown]
  - Haemorrhagic stroke [Unknown]
  - Hiatus hernia [Unknown]
  - Oropharyngeal pain [Unknown]
